FAERS Safety Report 20522054 (Version 1)
Quarter: 2022Q1

REPORT INFORMATION
  Report Type: Spontaneous
  Country: US (occurrence: US)
  Receive Date: 20220226
  Receipt Date: 20220226
  Transmission Date: 20220424
  Serious: Yes (Death, Other)
  Sender: FDA-Public Use
  Company Number: US-NOVARTISPH-NVSC2022US045467

PATIENT
  Age: 61 Year
  Sex: Male

DRUGS (3)
  1. RANITIDINE [Suspect]
     Active Substance: RANITIDINE
     Indication: Product used for unknown indication
     Dosage: 300 MG,,OTHER,300 MG TWICE DAILY
     Route: 048
     Dates: start: 201610, end: 201909
  2. RANITIDINE [Suspect]
     Active Substance: RANITIDINE
     Indication: Product used for unknown indication
     Dosage: 300 MG,,OTHER,300 MG TWICE DAILY
     Route: 048
     Dates: start: 201610, end: 201909
  3. RANITIDINE [Suspect]
     Active Substance: RANITIDINE
     Indication: Product used for unknown indication
     Dosage: ,,,,OTHER,DAILY,
     Route: 048
     Dates: start: 201610, end: 201909

REACTIONS (3)
  - Prostate cancer [Unknown]
  - Death [Fatal]
  - Incorrect dose administered [Unknown]

NARRATIVE: CASE EVENT DATE: 20180101
